FAERS Safety Report 16246411 (Version 1)
Quarter: 2019Q2

REPORT INFORMATION
  Report Type: Report from Study
  Country: None (occurrence: AR)
  Receive Date: 20190427
  Receipt Date: 20190427
  Transmission Date: 20190711
  Serious: Yes (Hospitalization, Other)
  Sender: FDA-Public Use
  Company Number: AR-ABBVIE-19K-007-2758250-00

PATIENT
  Age: 51 Year
  Sex: Male

DRUGS (1)
  1. HUMIRA [Suspect]
     Active Substance: ADALIMUMAB
     Indication: UVEITIS
     Route: 058
     Dates: start: 20190219

REACTIONS (3)
  - Weight decreased [Not Recovered/Not Resolved]
  - Food poisoning [Recovered/Resolved]
  - Haemorrhoids thrombosed [Not Recovered/Not Resolved]

NARRATIVE: CASE EVENT DATE: 201903
